FAERS Safety Report 6295418-9 (Version None)
Quarter: 2009Q3

REPORT INFORMATION
  Report Type: 
  Country: None (occurrence: None)
  Receive Date: 20090803
  Receipt Date: 20090721
  Transmission Date: 20100115
  Serious: No
  Sender: FDA-Public Use
  Company Number: PHEH2009US07914

PATIENT
  Sex: Male

DRUGS (10)
  1. TASIGNA [Suspect]
     Indication: CHRONIC MYELOID LEUKAEMIA
     Dosage: 400 MG, BID
  2. LEVAQUIN [Interacting]
     Indication: SINUSITIS
  3. AMIODARONE ^BERENG INFALE^ [Concomitant]
  4. METOPROLOL SUCCINATE [Concomitant]
  5. WARFARIN SODIUM [Concomitant]
  6. PRILOSEC [Concomitant]
  7. GLYBURIDE [Concomitant]
  8. BYETTA [Concomitant]
  9. CRESTOR [Concomitant]
  10. VALTREX [Concomitant]

REACTIONS (2)
  - NO ADVERSE EVENT [None]
  - SINUSITIS [None]
